FAERS Safety Report 9305187 (Version 1)
Quarter: 2013Q2

REPORT INFORMATION
  Report Type: Spontaneous
  Country: US (occurrence: None)
  Receive Date: 20130522
  Receipt Date: 20130522
  Transmission Date: 20140414
  Serious: Yes (Death)
  Sender: FDA-Public Use
  Company Number: None

PATIENT
  Age: 64 Year
  Sex: Female
  Weight: 107.96 kg

DRUGS (1)
  1. VELCADE [Suspect]

REACTIONS (5)
  - Unresponsive to stimuli [None]
  - Blood pressure decreased [None]
  - Oxygen saturation decreased [None]
  - Sepsis [None]
  - General physical health deterioration [None]
